FAERS Safety Report 25142960 (Version 3)
Quarter: 2025Q2

REPORT INFORMATION
  Report Type: Spontaneous
  Country: CH (occurrence: CH)
  Receive Date: 20250401
  Receipt Date: 20250424
  Transmission Date: 20250716
  Serious: Yes (Other)
  Sender: SUNOVION
  Company Number: CH-CNX THERAPEUTICS-2025CNX000179

PATIENT

DRUGS (7)
  1. LATUDA [Suspect]
     Active Substance: LURASIDONE HYDROCHLORIDE
     Indication: Product used for unknown indication
     Route: 065
  2. LATUDA [Suspect]
     Active Substance: LURASIDONE HYDROCHLORIDE
     Route: 065
  3. LATUDA [Suspect]
     Active Substance: LURASIDONE HYDROCHLORIDE
     Route: 065
  4. LATUDA [Suspect]
     Active Substance: LURASIDONE HYDROCHLORIDE
     Route: 065
  5. LATUDA [Suspect]
     Active Substance: LURASIDONE HYDROCHLORIDE
     Route: 065
  6. LATUDA [Suspect]
     Active Substance: LURASIDONE HYDROCHLORIDE
     Route: 065
  7. LATUDA [Suspect]
     Active Substance: LURASIDONE HYDROCHLORIDE
     Route: 065

REACTIONS (14)
  - Coma [Unknown]
  - Suicidal ideation [Not Recovered/Not Resolved]
  - Peripheral coldness [Unknown]
  - Eating disorder [Unknown]
  - Skin discolouration [Unknown]
  - Swelling face [Unknown]
  - Nightmare [Unknown]
  - Hyperhidrosis [Unknown]
  - Depression [Unknown]
  - Agitation [Unknown]
  - Vomiting [Recovering/Resolving]
  - Hypersomnia [Not Recovered/Not Resolved]
  - Weight increased [Unknown]
  - Wrong technique in product usage process [Not Recovered/Not Resolved]
